APPROVED DRUG PRODUCT: FYARRO
Active Ingredient: SIROLIMUS
Strength: 100MG/VIAL
Dosage Form/Route: POWDER;INTRAVENOUS
Application: N213312 | Product #001
Applicant: AADI SUBSIDIARY INC
Approved: Nov 22, 2021 | RLD: Yes | RS: Yes | Type: RX

PATENTS:
Patent 12133844 | Expires: Jun 29, 2036
Patent 12133844 | Expires: Jun 29, 2036
Patent 12133844 | Expires: Jun 29, 2036
Patent 10973806 | Expires: Jun 29, 2036
Patent 8911786 | Expires: Feb 14, 2029
Patent 10206887 | Expires: Apr 15, 2030
Patent 11497737 | Expires: Oct 28, 2040
Patent 12061183 | Expires: Mar 5, 2036
Patent 10705070 | Expires: Mar 5, 2036

EXCLUSIVITY:
Code: ODE-386 | Date: Nov 22, 2028